FAERS Safety Report 6056759-3 (Version None)
Quarter: 2009Q1

REPORT INFORMATION
  Report Type: 
  Country: None (occurrence: None)
  Receive Date: 20090129
  Receipt Date: 20090126
  Transmission Date: 20090719
  Serious: Yes (Other)
  Sender: FDA-Public Use
  Company Number: US-ASTRAZENECA-2009UW02193

PATIENT
  Age: 43 Year
  Sex: Female

DRUGS (1)
  1. NEXIUM [Suspect]
     Indication: ABDOMINAL PAIN UPPER
     Route: 048
     Dates: start: 20080101

REACTIONS (2)
  - COUGH [None]
  - PNEUMONIA [None]
